FAERS Safety Report 7724773-5 (Version None)
Quarter: 2011Q3

REPORT INFORMATION
  Report Type: 
  Country: None (occurrence: None)
  Receive Date: 20110901
  Receipt Date: 20110822
  Transmission Date: 20111222
  Serious: No
  Sender: FDA-Public Use
  Company Number: US-B.I. PHARMACEUTICALS,INC./RIDGEFIELD-2011-BP-20543BP

PATIENT
  Age: 72 Year
  Sex: Male

DRUGS (4)
  1. TORADOL [Concomitant]
  2. DILTIAZEM [Concomitant]
  3. DIGOXIN [Concomitant]
  4. PRADAXA [Suspect]
     Indication: ATRIAL FIBRILLATION
     Dosage: 300 MG
     Route: 048
     Dates: start: 20110301

REACTIONS (2)
  - BLISTER [None]
  - PRURITUS GENERALISED [None]
